FAERS Safety Report 11489778 (Version 1)
Quarter: 2015Q3

REPORT INFORMATION
  Report Type: Spontaneous
  Country: CA (occurrence: CA)
  Receive Date: 20150909
  Receipt Date: 20150909
  Transmission Date: 20151125
  Serious: Yes (Other)
  Sender: FDA-Public Use
  Company Number: CA-TEVA-592026ACC

PATIENT
  Age: 3 Year
  Sex: Female
  Weight: 17.25 kg

DRUGS (8)
  1. VINCRISTINE SULFATE INJECTION USP [Suspect]
     Active Substance: VINCRISTINE SULFATE
     Indication: ACUTE LYMPHOCYTIC LEUKAEMIA
     Route: 042
  2. DEXAMETHASONE. [Concomitant]
     Active Substance: DEXAMETHASONE
  3. METHOTREXATE [Concomitant]
     Active Substance: METHOTREXATE
  4. RANITIDINE [Concomitant]
     Active Substance: RANITIDINE\RANITIDINE HYDROCHLORIDE
  5. POLYETHYLENE GLYCOL [Concomitant]
     Active Substance: POLYETHYLENE GLYCOLS
  6. CYTARABINE INJECTION [Concomitant]
     Active Substance: CYTARABINE
  7. CHLORHEXIDINE [Concomitant]
     Active Substance: CHLORHEXIDINE
  8. L-ASPARAGINASE [Concomitant]
     Active Substance: ASPARAGINASE
     Route: 030

REACTIONS (7)
  - Motor dysfunction [Recovered/Resolved]
  - Eyelid ptosis [Recovered/Resolved]
  - Lethargy [Recovered/Resolved]
  - Blood sodium decreased [Recovered/Resolved]
  - Alopecia [Recovered/Resolved]
  - Dysphonia [Recovered/Resolved]
  - Seizure [Recovered/Resolved]
